FAERS Safety Report 11909991 (Version 2)
Quarter: 2016Q1

REPORT INFORMATION
  Report Type: Report from Study
  Country: US (occurrence: US)
  Receive Date: 20160112
  Receipt Date: 20160129
  Transmission Date: 20160526
  Serious: Yes (Hospitalization)
  Sender: FDA-Public Use
  Company Number: US-JNJFOC-20160104024

PATIENT
  Age: 65 Year
  Sex: Female
  Weight: 51.71 kg

DRUGS (2)
  1. STELARA [Suspect]
     Active Substance: USTEKINUMAB
     Indication: PSORIASIS
     Route: 058
     Dates: start: 201011, end: 201103
  2. VITAMIN D [Concomitant]
     Active Substance: CHOLECALCIFEROL
     Route: 061

REACTIONS (4)
  - Renal failure [Recovered/Resolved]
  - Ureterolithiasis [Recovered/Resolved]
  - Obstructive uropathy [Recovered/Resolved]
  - Encephalopathy [Recovered/Resolved]

NARRATIVE: CASE EVENT DATE: 20150816
